FAERS Safety Report 25376284 (Version 1)
Quarter: 2025Q2

REPORT INFORMATION
  Report Type: Spontaneous
  Country: FR (occurrence: FR)
  Receive Date: 20250529
  Receipt Date: 20250529
  Transmission Date: 20250716
  Serious: Yes (Other)
  Sender: UCB
  Company Number: None

PATIENT
  Age: 77 Year
  Sex: Male

DRUGS (2)
  1. KEPPRA [Suspect]
     Active Substance: LEVETIRACETAM
     Indication: Prophylaxis
     Route: 048
     Dates: start: 20241115, end: 20250114
  2. KEPPRA [Suspect]
     Active Substance: LEVETIRACETAM
     Dosage: 2 GRAM, ONCE DAILY (QD)
     Route: 048
     Dates: start: 20250119, end: 20250131

REACTIONS (1)
  - Rash maculo-papular [Recovering/Resolving]

NARRATIVE: CASE EVENT DATE: 20250129
